FAERS Safety Report 8237242-3 (Version None)
Quarter: 2012Q1

REPORT INFORMATION
  Report Type: 
  Country: None (occurrence: None)
  Receive Date: 20120327
  Receipt Date: 20120321
  Transmission Date: 20120608
  Serious: Yes (Hospitalization, Other)
  Sender: FDA-Public Use
  Company Number: US-BAYER-2011-070676

PATIENT
  Age: 29 Year
  Sex: Female
  Weight: 100 kg

DRUGS (6)
  1. VICODIN [Concomitant]
     Dosage: UNK
     Route: 048
     Dates: start: 20060807
  2. YASMIN [Suspect]
     Indication: ACNE
     Dosage: UNK
     Dates: start: 20050101, end: 20060101
  3. MOTRIN [Concomitant]
     Dosage: 600 MG, UNK
     Route: 048
     Dates: start: 20060812
  4. ZANTAC [Concomitant]
     Dosage: UNK
     Route: 048
     Dates: start: 20060814
  5. VITAMIN TAB [Concomitant]
  6. YASMIN [Suspect]
     Indication: PREMENSTRUAL SYNDROME

REACTIONS (7)
  - HYPOAESTHESIA [None]
  - PAIN [None]
  - PULMONARY EMBOLISM [None]
  - TRAUMATIC LUNG INJURY [None]
  - PANIC ATTACK [None]
  - DYSPNOEA [None]
  - DIZZINESS [None]
